FAERS Safety Report 8026754 (Version 2)
Quarter: 2012Q4

REPORT INFORMATION
  Report Type: Report from Study
  Country: HU (occurrence: HU)
  Receive Date: 20110708
  Receipt Date: 20120913
  Transmission Date: 20130627
  Serious: Yes (Other)
  Sender: FDA-Public Use
  Company Number: HU-PFIZER INC-2011149704

PATIENT
  Age: 51 Year
  Sex: Female
  Weight: 82 kg

DRUGS (14)
  1. LYRICA [Suspect]
     Indication: NEURALGIA
     Dosage: 75 mg in the morning and 150 mg in the evening
     Dates: start: 20110416, end: 20110502
  2. LYRICA [Suspect]
     Dosage: 150 mg, 1x/day
     Dates: start: 201201, end: 201203
  3. NOOTROPIL [Concomitant]
     Dosage: UNK
  4. CAVINTON [Concomitant]
     Dosage: UNK
  5. DIPANKRIN [Concomitant]
     Dosage: UNK
     Dates: start: 2000
  6. CONTRAMAL [Concomitant]
     Dosage: UNK
  7. TEGRETOL [Concomitant]
     Dosage: UNK
  8. DEPRAL [Concomitant]
     Dosage: UNK
  9. MAGNE-B6 [Concomitant]
     Dosage: UNK
  10. MYDETON [Concomitant]
     Dosage: UNK
  11. DIAPREL [Concomitant]
     Dosage: UNK
  12. NO-SPA [Concomitant]
     Dosage: UNK
  13. PANADOL [Concomitant]
     Dosage: UNK
  14. MILGAMMA [Concomitant]
     Dosage: UNK

REACTIONS (7)
  - Epileptic aura [Recovered/Resolved with Sequelae]
  - Tremor [Recovered/Resolved with Sequelae]
  - Muscle spasms [Recovered/Resolved with Sequelae]
  - Nodule [Recovered/Resolved with Sequelae]
  - Discomfort [Recovered/Resolved with Sequelae]
  - Nodule [Not Recovered/Not Resolved]
  - Pain [Not Recovered/Not Resolved]
